FAERS Safety Report 18867921 (Version 2)
Quarter: 2021Q3

REPORT INFORMATION
  Report Type: Report from Study
  Country: BR (occurrence: BR)
  Receive Date: 20210209
  Receipt Date: 20210802
  Transmission Date: 20211014
  Serious: Yes (Life-Threatening, Other)
  Sender: FDA-Public Use
  Company Number: NVSC2021BR011143

PATIENT
  Age: 62 Year
  Sex: Male

DRUGS (3)
  1. COSENTYX [Suspect]
     Active Substance: SECUKINUMAB
     Dosage: UNK
     Route: 065
     Dates: start: 20201211
  2. COSENTYX [Suspect]
     Active Substance: SECUKINUMAB
     Dosage: 300 MG, UNKNOWN
     Route: 065
     Dates: start: 20210714
  3. COSENTYX [Suspect]
     Active Substance: SECUKINUMAB
     Indication: PSORIATIC ARTHROPATHY
     Dosage: 300 MG  (APPROXIMATELY 3 WEEKS)
     Route: 065
     Dates: start: 20200820

REACTIONS (14)
  - Prostatitis [Unknown]
  - Gene mutation [Unknown]
  - Psoriasis [Not Recovered/Not Resolved]
  - COVID-19 [Recovered/Resolved]
  - Memory impairment [Recovering/Resolving]
  - COVID-19 pneumonia [Recovered/Resolved with Sequelae]
  - Skin discolouration [Unknown]
  - Decreased immune responsiveness [Unknown]
  - Discomfort [Unknown]
  - Anosmia [Unknown]
  - Fatigue [Unknown]
  - Wound [Unknown]
  - Haemorrhoids [Not Recovered/Not Resolved]
  - Hypertension [Unknown]

NARRATIVE: CASE EVENT DATE: 202101
